FAERS Safety Report 7518080-3 (Version None)
Quarter: 2011Q2

REPORT INFORMATION
  Report Type: 
  Country: None (occurrence: None)
  Receive Date: 20110523
  Receipt Date: 20110511
  Transmission Date: 20111010
  Serious: Yes (Other)
  Sender: FDA-Public Use
  Company Number: 2011SP001478

PATIENT
  Age: 36 Year
  Sex: Female
  Weight: 88.5 kg

DRUGS (13)
  1. PAXIL [Concomitant]
  2. SEROQUEL [Concomitant]
  3. ZOLOFT [Concomitant]
  4. TOPAMAX [Concomitant]
  5. GEODON [Concomitant]
  6. LYRICA [Suspect]
     Indication: FIBROMYALGIA
  7. DEPAKOTE [Concomitant]
  8. ATIVAN [Concomitant]
  9. PROZAC [Concomitant]
  10. LATUDA [Suspect]
     Indication: BIPOLAR DISORDER
     Dosage: ORAL
     Route: 048
     Dates: start: 20110217
  11. LATUDA [Suspect]
     Indication: PSYCHOTIC DISORDER
     Dosage: ORAL
     Route: 048
     Dates: start: 20110217
  12. LEXAPRO [Concomitant]
  13. VALIUM [Concomitant]

REACTIONS (2)
  - WEIGHT INCREASED [None]
  - HYPOTENSION [None]
